FAERS Safety Report 8392826 (Version 4)
Quarter: 2013Q2

REPORT INFORMATION
  Report Type: Spontaneous
  Country: US (occurrence: US)
  Receive Date: 20120207
  Receipt Date: 20130517
  Transmission Date: 20140414
  Serious: No
  Sender: FDA-Public Use
  Company Number: US-BIOGENIDEC-2012BI003189

PATIENT
  Age: 50 Year
  Sex: Male

DRUGS (1)
  1. TYSABRI [Suspect]
     Indication: MULTIPLE SCLEROSIS
     Route: 042
     Dates: start: 20120125

REACTIONS (7)
  - Infusion related reaction [Recovered/Resolved]
  - Micturition urgency [Not Recovered/Not Resolved]
  - Musculoskeletal pain [Recovered/Resolved]
  - Vascular pain [Recovered/Resolved]
  - Dehydration [Recovered/Resolved]
  - Muscle rupture [Not Recovered/Not Resolved]
  - Pruritus [Recovered/Resolved]
